FAERS Safety Report 13885143 (Version 1)
Quarter: 2017Q3

REPORT INFORMATION
  Report Type: Other
  Country: US (occurrence: US)
  Receive Date: 20170821
  Receipt Date: 20170821
  Transmission Date: 20171127
  Serious: No
  Sender: FDA-Public Use
  Company Number: US-AUROBINDO-AUR-APU-2015-06152

PATIENT

DRUGS (1)
  1. TERBINAFINE HYDROCHLORIDE TABLETS 250MG [Suspect]
     Active Substance: TERBINAFINE HYDROCHLORIDE
     Indication: NAIL INFECTION
     Dosage: 250 MG, UNK
     Route: 065

REACTIONS (3)
  - Dysgeusia [Not Recovered/Not Resolved]
  - Depressed mood [Unknown]
  - Weight decreased [Unknown]
